FAERS Safety Report 8252229-2 (Version None)
Quarter: 2012Q2

REPORT INFORMATION
  Report Type: 
  Country: None (occurrence: None)
  Receive Date: 20120402
  Receipt Date: 20110908
  Transmission Date: 20120825
  Serious: No
  Sender: FDA-Public Use
  Company Number: US-ABBOTT-11P-163-0853644-00

PATIENT
  Age: 44 Year
  Sex: Male
  Weight: 99.88 kg

DRUGS (2)
  1. ANDROGEL [Suspect]
     Indication: BLOOD TESTOSTERONE DECREASED
     Dosage: 4 PUMPS DAILY
     Dates: end: 20110901
  2. TESTOSTERONE [Suspect]
     Indication: BLOOD TESTOSTERONE DECREASED
     Dates: end: 20110901

REACTIONS (3)
  - DRUG ADMINISTRATION ERROR [None]
  - SPERM CONCENTRATION ZERO [None]
  - INCORRECT DOSE ADMINISTERED [None]
